FAERS Safety Report 25184963 (Version 1)
Quarter: 2025Q2

REPORT INFORMATION
  Report Type: Spontaneous
  Country: CN (occurrence: CN)
  Receive Date: 20250410
  Receipt Date: 20250410
  Transmission Date: 20250717
  Serious: Yes (Other)
  Sender: BRACCO
  Company Number: CN-BRACCO-2025CN02152

PATIENT
  Age: 50 Year
  Sex: Male

DRUGS (1)
  1. IOMEPROL [Suspect]
     Active Substance: IOMEPROL
     Indication: Angiogram cerebral
     Route: 042
     Dates: start: 20250320, end: 20250320

REACTIONS (2)
  - Contrast encephalopathy [Recovering/Resolving]
  - Dysphoria [Recovering/Resolving]

NARRATIVE: CASE EVENT DATE: 20250320
